FAERS Safety Report 8325513-1 (Version None)
Quarter: 2012Q2

REPORT INFORMATION
  Report Type: 
  Country: None (occurrence: None)
  Receive Date: 20120501
  Receipt Date: 20120420
  Transmission Date: 20120825
  Serious: Yes (Death)
  Sender: FDA-Public Use
  Company Number: FR-NOVOPROD-350079

PATIENT
  Age: 43 Year
  Sex: Male

DRUGS (4)
  1. VICTOZA [Suspect]
     Indication: TYPE 2 DIABETES MELLITUS
     Dosage: 0.6 MG, QD
     Route: 058
  2. GLICAZIDA [Concomitant]
  3. CRESTOR [Concomitant]
  4. METFORMIN HCL [Concomitant]

REACTIONS (1)
  - AORTIC ANEURYSM RUPTURE [None]
